FAERS Safety Report 20857622 (Version 2)
Quarter: 2022Q2

REPORT INFORMATION
  Report Type: Spontaneous
  Country: US (occurrence: US)
  Receive Date: 20220521
  Receipt Date: 20220627
  Transmission Date: 20220721
  Serious: No
  Sender: FDA-Public Use
  Company Number: US-SA-SAC20220513001625

PATIENT
  Age: 71 Year
  Sex: Female

DRUGS (10)
  1. CERDELGA [Suspect]
     Active Substance: ELIGLUSTAT
     Indication: Lipidosis
     Dosage: 81 MG, QD
     Route: 048
     Dates: start: 20150718
  2. ELELYSO [Concomitant]
     Active Substance: TALIGLUCERASE ALFA
  3. ZINC [Concomitant]
     Active Substance: ZINC
  4. VITAMIN D2 [Concomitant]
     Active Substance: ERGOCALCIFEROL
  5. COENZYME Q10 [Concomitant]
     Active Substance: DIETARY SUPPLEMENT\UBIDECARENONE
  6. VITAMINS [Concomitant]
     Active Substance: VITAMINS
  7. ACETYLCYSTEINE [Concomitant]
     Active Substance: ACETYLCYSTEINE
  8. ASCORBIC ACID [Concomitant]
     Active Substance: ASCORBIC ACID
  9. CALCIUM\VITAMIN D [Concomitant]
     Active Substance: CALCIUM\VITAMIN D
  10. CLARITIN [Concomitant]
     Active Substance: LORATADINE

REACTIONS (4)
  - Abdominal discomfort [Unknown]
  - Pruritus [Unknown]
  - Swollen tongue [Unknown]
  - Headache [Unknown]
